FAERS Safety Report 18746998 (Version 1)
Quarter: 2021Q1

REPORT INFORMATION
  Report Type: Spontaneous
  Country: GB (occurrence: GB)
  Receive Date: 20210115
  Receipt Date: 20210115
  Transmission Date: 20210419
  Serious: Yes (Hospitalization, Other)
  Sender: FDA-Public Use
  Company Number: GB-MYLANLABS-2021M1002364

PATIENT
  Age: 34 Year
  Sex: Female
  Weight: 90.1 kg

DRUGS (6)
  1. ETHINYLESTRADIOL [Suspect]
     Active Substance: ETHINYL ESTRADIOL
     Indication: HORMONAL CONTRACEPTION
     Dosage: TAKE ONE DAILY FOR 21 DAYS THEN REPEAT SUBSEQUENT COURSES AFTER 7 DAY TABLET FREE INTERVAL
     Route: 048
  2. OMEPRAZOLE SODIUM [Concomitant]
     Active Substance: OMEPRAZOLE SODIUM
     Indication: ILL-DEFINED DISORDER
     Dosage: UNK
  3. BENZYLPENICILLIN SODIUM [Concomitant]
     Active Substance: PENICILLIN G SODIUM
     Indication: ILL-DEFINED DISORDER
     Dosage: UNK
  4. CANESTEN [Concomitant]
     Active Substance: CLOTRIMAZOLE
     Indication: ILL-DEFINED DISORDER
     Dosage: UNK
  5. LEVONORGESTREL. [Suspect]
     Active Substance: LEVONORGESTREL
     Indication: HORMONAL CONTRACEPTION
     Dosage: TAKE ONE DAILY FOR 21 DAYS THEN REPEAT SUBSEQUENT COURSES AFTER 7 DAY TABLET FREE INTERVAL
     Route: 048
  6. DEXAMETHASONE. [Concomitant]
     Active Substance: DEXAMETHASONE
     Indication: ILL-DEFINED DISORDER
     Dosage: UNK

REACTIONS (1)
  - Pulmonary embolism [Recovered/Resolved with Sequelae]

NARRATIVE: CASE EVENT DATE: 20210110
